FAERS Safety Report 6317630-2 (Version None)
Quarter: 2009Q3

REPORT INFORMATION
  Report Type: 
  Country: None (occurrence: None)
  Receive Date: 20090821
  Receipt Date: 20090812
  Transmission Date: 20100115
  Serious: Yes (Hospitalization)
  Sender: FDA-Public Use
  Company Number: JP-ABBOTT-09P-087-0582429-00

PATIENT
  Sex: Female
  Weight: 42.8 kg

DRUGS (18)
  1. HUMIRA [Suspect]
     Indication: RHEUMATOID ARTHRITIS
     Route: 058
     Dates: start: 20080911, end: 20081009
  2. METHOTREXATE [Concomitant]
     Indication: RHEUMATOID ARTHRITIS
     Dosage: 8 MG PER WEEK
     Dates: end: 20081009
  3. PREDNISOLONE [Concomitant]
     Indication: RHEUMATOID ARTHRITIS
     Dosage: 6MG DAILY
     Route: 048
     Dates: end: 20081009
  4. FOLIC ACID [Concomitant]
     Indication: PROPHYLAXIS
     Dosage: 5MG PER WEEK
     Dates: end: 20081009
  5. FOLIC ACID [Concomitant]
     Indication: ADVERSE DRUG REACTION
  6. CELECOXIB [Concomitant]
     Indication: PROPHYLAXIS
     Dosage: 200MG DAILY
     Dates: end: 20081009
  7. CELECOXIB [Concomitant]
     Indication: ADVERSE DRUG REACTION
  8. TEPRENONE [Concomitant]
     Indication: PROPHYLAXIS
     Dosage: 200MG DAILY
     Dates: end: 20081009
  9. TEPRENONE [Concomitant]
     Indication: ADVERSE DRUG REACTION
  10. ALENDRONATE SODIUM [Concomitant]
     Indication: PROPHYLAXIS
     Dosage: 35MG DAILY
     Dates: end: 20081009
  11. ALENDRONATE SODIUM [Concomitant]
     Indication: ADVERSE DRUG REACTION
  12. ALFACALCIDOL [Concomitant]
     Indication: PROPHYLAXIS
     Dosage: 1MG DAILY
     Dates: end: 20081009
  13. ALFACALCIDOL [Concomitant]
     Indication: ADVERSE DRUG REACTION
  14. MAGNESIUM OXIDE [Concomitant]
     Indication: PROPHYLAXIS
     Dosage: 660MG DAILY
     Dates: end: 20081009
  15. MAGNESIUM OXIDE [Concomitant]
     Indication: ADVERSE DRUG REACTION
  16. PRAVASTATIN SODIUM [Concomitant]
     Indication: PROPHYLAXIS
     Dosage: 10MG DAILY
     Dates: end: 20081009
  17. PRAVASTATIN SODIUM [Concomitant]
     Indication: ADVERSE DRUG REACTION
  18. FLURBIPROFEN [Concomitant]
     Indication: RHEUMATOID ARTHRITIS
     Dosage: TWICE
     Dates: end: 20081009

REACTIONS (3)
  - CHILLS [None]
  - MALAISE [None]
  - PYREXIA [None]
